FAERS Safety Report 7296560-6 (Version None)
Quarter: 2011Q1

REPORT INFORMATION
  Report Type: 
  Country: None (occurrence: None)
  Receive Date: 20110216
  Receipt Date: 20110204
  Transmission Date: 20110831
  Serious: Yes (Hospitalization, Other)
  Sender: FDA-Public Use
  Company Number: PHEH2008US09364

PATIENT
  Sex: Female
  Weight: 80.726 kg

DRUGS (26)
  1. LISINOPRIL [Concomitant]
  2. NEURONTIN [Concomitant]
  3. DIMENHYDRINATE [Concomitant]
  4. CAPECITABINE [Concomitant]
  5. HYDROCODONE [Concomitant]
  6. FLUOXETINE [Concomitant]
  7. OMEPRAZOLE [Concomitant]
  8. MORPHINE [Concomitant]
  9. DICYCLOMINE [Concomitant]
  10. EFFEXOR [Concomitant]
  11. COMPAZINE [Concomitant]
  12. ZANTAC [Concomitant]
  13. ZOMETA [Suspect]
     Dosage: 4MG MONTHLY
     Route: 042
     Dates: start: 20020101
  14. FEMARA [Concomitant]
     Dosage: 2.5MG DAILY
     Route: 048
     Dates: start: 20020901
  15. PROTONIX [Concomitant]
  16. METOPROLOL [Concomitant]
  17. ACETAMINOPHEN AND HYDROCODONE BITARTRATE [Concomitant]
  18. IMODIUM MULTI-SYMPTOM RELIEF [Concomitant]
  19. ASPIRIN [Concomitant]
  20. LOMOTIL [Concomitant]
  21. PROCHLORPERAZINE [Concomitant]
  22. CYTOXAN [Concomitant]
  23. DEXAMETHASONE [Concomitant]
  24. OXYCONTIN [Concomitant]
  25. AMOXICILLIN [Concomitant]
  26. ADRIAMYCIN PFS [Concomitant]

REACTIONS (29)
  - OSTEONECROSIS OF JAW [None]
  - PAIN [None]
  - METASTASES TO LIVER [None]
  - STAPHYLOCOCCAL INFECTION [None]
  - MUCOSAL INFLAMMATION [None]
  - WEIGHT DECREASED [None]
  - VOMITING [None]
  - INFECTION [None]
  - PHYSICAL DISABILITY [None]
  - HYPOAESTHESIA [None]
  - INJURY [None]
  - SPINAL OSTEOARTHRITIS [None]
  - NAUSEA [None]
  - HYPOKALAEMIA [None]
  - ANXIETY [None]
  - BONE SWELLING [None]
  - HYPONATRAEMIA [None]
  - CARDIAC FAILURE CONGESTIVE [None]
  - METASTASES TO BONE [None]
  - DEPRESSION [None]
  - EMOTIONAL DISTRESS [None]
  - BONE DISORDER [None]
  - ABDOMINAL PAIN [None]
  - SWELLING FACE [None]
  - PULMONARY OEDEMA [None]
  - PSEUDOMEMBRANOUS COLITIS [None]
  - SCAR [None]
  - BACK PAIN [None]
  - DIARRHOEA [None]
